FAERS Safety Report 10147057 (Version 1)
Quarter: 2014Q2

REPORT INFORMATION
  Report Type: Spontaneous
  Country: US (occurrence: US)
  Receive Date: 20140501
  Receipt Date: 20140501
  Transmission Date: 20141212
  Serious: No
  Sender: FDA-Public Use
  Company Number: US-PFIZER INC-2014120600

PATIENT
  Age: 54 Year
  Sex: Female
  Weight: 133.79 kg

DRUGS (3)
  1. CHANTIX [Suspect]
     Indication: SMOKING CESSATION THERAPY
     Dosage: UNK
     Route: 048
     Dates: start: 2010
  2. CHANTIX [Suspect]
     Dosage: UNK
     Route: 048
     Dates: start: 2011
  3. CHANTIX [Suspect]
     Dosage: UNK
     Route: 048
     Dates: start: 2012, end: 2012

REACTIONS (1)
  - Abnormal dreams [Recovered/Resolved]
